FAERS Safety Report 6920860-X (Version None)
Quarter: 2010Q3

REPORT INFORMATION
  Report Type: 
  Country: None (occurrence: None)
  Receive Date: 20100812
  Receipt Date: 20100803
  Transmission Date: 20110219
  Serious: Yes (Hospitalization)
  Sender: FDA-Public Use
  Company Number: US-ALEXION-A201000111

PATIENT
  Sex: Female

DRUGS (11)
  1. SOLIRIS [Suspect]
     Indication: PAROXYSMAL NOCTURNAL HAEMOGLOBINURIA
     Dosage: 600 MG, QW
     Route: 042
     Dates: start: 20090323, end: 20090413
  2. SOLIRIS [Suspect]
     Dosage: 900 MG, Q2W
     Route: 042
     Dates: start: 20090420, end: 20100601
  3. FOLIC ACID [Concomitant]
     Dosage: 1 MG, QD
     Route: 048
  4. LASIX [Concomitant]
     Dosage: 40 MG, QD
     Route: 048
  5. SYNTHROID [Concomitant]
     Dosage: 25 UG, QD
     Route: 048
  6. GABAPENTIN [Concomitant]
     Dosage: 300 MG, TID
     Route: 048
  7. LIPITOR [Concomitant]
     Dosage: 40 MG, QD
     Route: 048
  8. PRILOSEC [Concomitant]
     Dosage: 40 MG, BID
     Route: 048
  9. COLACE [Concomitant]
     Dosage: 100 MG, BID
     Route: 048
  10. K-DUR [Concomitant]
     Dosage: 20 MEQ, QD
     Route: 048
  11. REGLAN [Concomitant]
     Dosage: UNK
     Route: 048

REACTIONS (3)
  - CARDIAC FAILURE CONGESTIVE [None]
  - RENAL DISORDER [None]
  - TRANSFUSION [None]
